FAERS Safety Report 13899239 (Version 1)
Quarter: 2017Q3

REPORT INFORMATION
  Report Type: Spontaneous
  Country: GR (occurrence: GR)
  Receive Date: 20170824
  Receipt Date: 20170824
  Transmission Date: 20171127
  Serious: Yes (Hospitalization)
  Sender: FDA-Public Use
  Company Number: GR-PFIZER INC-2017357951

PATIENT
  Sex: Female

DRUGS (4)
  1. XANAX [Suspect]
     Active Substance: ALPRAZOLAM
     Indication: SOMATIC SYMPTOM DISORDER
     Dosage: 0.5 MG, UNK
  2. REMERON [Concomitant]
     Active Substance: MIRTAZAPINE
     Indication: ANOREXIA NERVOSA
  3. REMERON [Concomitant]
     Active Substance: MIRTAZAPINE
     Indication: SOMATIC SYMPTOM DISORDER
     Dosage: UNK
  4. XANAX [Suspect]
     Active Substance: ALPRAZOLAM
     Indication: ANOREXIA NERVOSA

REACTIONS (2)
  - Anaphylactic shock [Unknown]
  - Insomnia [Unknown]
